FAERS Safety Report 12158992 (Version 1)
Quarter: 2016Q1

REPORT INFORMATION
  Report Type: Spontaneous
  Country: ZA (occurrence: ZA)
  Receive Date: 20160308
  Receipt Date: 20160308
  Transmission Date: 20160526
  Serious: Yes (Disabling)
  Sender: FDA-Public Use
  Company Number: ZA-MYLANLABS-2016M1009282

PATIENT

DRUGS (1)
  1. TENOFOVIR DF/EFAVIRENZ/EMTRICITABINE TABLETS 300/600/200MG [Suspect]
     Active Substance: EFAVIRENZ\EMTRICITABINE\TENOFOVIR DISOPROXIL FUMARATE
     Indication: ANTIRETROVIRAL THERAPY
     Dosage: UNK

REACTIONS (2)
  - Deafness [Unknown]
  - Tinnitus [Unknown]

NARRATIVE: CASE EVENT DATE: 20140405
